FAERS Safety Report 12428298 (Version 4)
Quarter: 2016Q3

REPORT INFORMATION
  Report Type: Spontaneous
  Country: JP (occurrence: JP)
  Receive Date: 20160602
  Receipt Date: 20160912
  Transmission Date: 20161109
  Serious: Yes (Other)
  Sender: FDA-Public Use
  Company Number: JP-GLAXOSMITHKLINE-JP2016JPN066044

PATIENT
  Age: 79 Year
  Sex: Male
  Weight: 70 kg

DRUGS (10)
  1. AVOLVE [Concomitant]
     Active Substance: DUTASTERIDE
     Dosage: 0.5 MG, QD
  2. CARBOCISTEINE [Concomitant]
     Active Substance: CARBOCYSTEINE
     Dosage: UNK, TID
  3. CONIEL [Concomitant]
     Active Substance: BENIDIPINE HYDROCHLORIDE
     Dosage: 4 MG, QD
  4. POLARAMINE DRY SYRUP [Concomitant]
     Dosage: UNK, TID
  5. RELVAR ELLIPTA [Suspect]
     Active Substance: FLUTICASONE FUROATE\VILANTEROL TRIFENATATE
     Indication: ASTHMA
     Dosage: 100 ?G, QD
     Route: 055
     Dates: start: 20151009, end: 20160309
  6. ALLOPURINOL. [Concomitant]
     Active Substance: ALLOPURINOL
     Dosage: 100 MG, BID
  7. KIPRES [Concomitant]
     Active Substance: MONTELUKAST SODIUM
     Dosage: 10 MG, QD
  8. THEO-DUR [Concomitant]
     Active Substance: THEOPHYLLINE ANHYDROUS
     Dosage: 200 MG, BID
  9. FAMOTIDINE. [Concomitant]
     Active Substance: FAMOTIDINE
     Dosage: 20 MG, BID
  10. TULOBUTEROL HYDROCHLORIDE [Concomitant]
     Active Substance: TULOBUTEROL HYDROCHLORIDE
     Dosage: UNK, TID

REACTIONS (1)
  - Ageusia [Recovering/Resolving]

NARRATIVE: CASE EVENT DATE: 20160309
